FAERS Safety Report 4973715-4 (Version None)
Quarter: 2006Q2

REPORT INFORMATION
  Report Type: 
  Country: None (occurrence: None)
  Receive Date: 20060414
  Receipt Date: 20051104
  Transmission Date: 20061013
  Serious: Yes (Death)
  Sender: FDA-Public Use
  Company Number: US-MERCK-0511USA00992

PATIENT
  Age: 49 Year
  Sex: Male
  Weight: 74 kg

DRUGS (5)
  1. VIOXX [Suspect]
     Indication: JOINT SPRAIN
     Route: 048
     Dates: start: 20010301
  2. VIOXX [Suspect]
     Route: 048
     Dates: start: 20030701
  3. VIOXX [Suspect]
     Indication: MUSCULOSKELETAL DISCOMFORT
     Route: 048
     Dates: start: 20010301
  4. VIOXX [Suspect]
     Route: 048
     Dates: start: 20030701
  5. VICODIN [Concomitant]
     Route: 065

REACTIONS (4)
  - DEATH [None]
  - ERECTILE DYSFUNCTION [None]
  - INTERVERTEBRAL DISC DEGENERATION [None]
  - SCIATICA [None]
